FAERS Safety Report 17761141 (Version 2)
Quarter: 2020Q2

REPORT INFORMATION
  Report Type: Spontaneous
  Country: DE (occurrence: DE)
  Receive Date: 20200508
  Receipt Date: 20200515
  Transmission Date: 20200714
  Serious: Yes (Congenital Anomaly)
  Sender: FDA-Public Use
  Company Number: DE-UCBSA-2020018464

PATIENT
  Sex: Female
  Weight: 2.8 kg

DRUGS (2)
  1. LEVETIRACETAM. [Suspect]
     Active Substance: LEVETIRACETAM
     Indication: EPILEPSY
     Dosage: 1.2 GRAM PER DAY
     Route: 064
  2. VALPROATE [Suspect]
     Active Substance: VALPROIC ACID
     Indication: EPILEPSY
     Dosage: 1.8 GRAM PER DAY
     Route: 064

REACTIONS (2)
  - Meningomyelocele [Unknown]
  - Maternal exposure during pregnancy [Unknown]
